FAERS Safety Report 23991866 (Version 1)
Quarter: 2024Q2

REPORT INFORMATION
  Report Type: Report from Study
  Country: US (occurrence: US)
  Receive Date: 20240619
  Receipt Date: 20240619
  Transmission Date: 20240715
  Serious: Yes (Death, Other)
  Sender: FDA-Public Use
  Company Number: US-ABBVIE-5807692

PATIENT
  Age: 64 Year
  Sex: Female

DRUGS (2)
  1. SYNTHROID [Suspect]
     Active Substance: LEVOTHYROXINE SODIUM
     Indication: Product used for unknown indication
     Dosage: FREQUENCY TEXT: FIVE DAYS A WEEK?100 MCG / 1 TABLET FIVE  DAYS A WEEK
     Route: 048
  2. SYNTHROID [Suspect]
     Active Substance: LEVOTHYROXINE SODIUM
     Indication: Product used for unknown indication
     Dosage: FREQUENCY TEXT: TWO DAYS A WEEK?100 MCG / 1 TABLETS TWO DAYS A WEEK
     Route: 048

REACTIONS (4)
  - Death [Fatal]
  - Intestinal perforation [Unknown]
  - Hysterectomy [Unknown]
  - Poisoning [Unknown]

NARRATIVE: CASE EVENT DATE: 20240614
